FAERS Safety Report 25210836 (Version 1)
Quarter: 2025Q2

REPORT INFORMATION
  Report Type: Spontaneous
  Country: US (occurrence: US)
  Receive Date: 20250417
  Receipt Date: 20250417
  Transmission Date: 20250717
  Serious: No
  Sender: PFIZER
  Company Number: US-PFIZER INC-202500078521

PATIENT
  Sex: Male

DRUGS (1)
  1. MARSTACIMAB [Suspect]
     Active Substance: MARSTACIMAB
     Dosage: 150 MG, WEEKLY (ONCE WEEKLY FOR APPROXIMATELY 4 WEEKS)

REACTIONS (1)
  - Injection site mass [Recovered/Resolved]
